FAERS Safety Report 26211932 (Version 1)
Quarter: 2025Q4

REPORT INFORMATION
  Report Type: Spontaneous
  Country: JP (occurrence: JP)
  Receive Date: 20251230
  Receipt Date: 20251230
  Transmission Date: 20260118
  Serious: Yes (Other)
  Sender: UCB
  Company Number: JP-UCBJ-CD202516924UCBPHAPROD

PATIENT

DRUGS (1)
  1. FINTEPLA [Suspect]
     Active Substance: FENFLURAMINE
     Indication: Lennox-Gastaut syndrome
     Dosage: UNK
     Route: 061

REACTIONS (10)
  - Epilepsy [Unknown]
  - Mood altered [Unknown]
  - Agitation [Unknown]
  - Faeces soft [Unknown]
  - Diarrhoea [Unknown]
  - Decreased appetite [Unknown]
  - Somnolence [Unknown]
  - Insomnia [Unknown]
  - Prescribed underdose [Unknown]
  - Off label use [Unknown]
